FAERS Safety Report 6528130-9 (Version None)
Quarter: 2010Q1

REPORT INFORMATION
  Report Type: 
  Country: None (occurrence: None)
  Receive Date: 20100106
  Receipt Date: 20091229
  Transmission Date: 20100710
  Serious: Yes (Hospitalization, Other)
  Sender: FDA-Public Use
  Company Number: FR-BAYER-200937309GPV

PATIENT
  Age: 33 Year
  Sex: Female

DRUGS (3)
  1. MIRENA [Suspect]
     Indication: CONTRACEPTION
     Route: 015
     Dates: start: 20020525, end: 20040710
  2. MIRENA [Suspect]
     Route: 015
     Dates: start: 20050825, end: 20091126
  3. LEVOTHYROX 100 [Concomitant]
     Indication: HYPOTHYROIDISM

REACTIONS (2)
  - BREAST CANCER [None]
  - BREAST PAIN [None]
